FAERS Safety Report 7234012-X (Version None)
Quarter: 2010Q4

REPORT INFORMATION
  Report Type: 
  Country: None (occurrence: None)
  Receive Date: 20101129
  Receipt Date: 20100804
  Transmission Date: 20110411
  Serious: Yes (Life-Threatening, Other)
  Sender: FDA-Public Use
  Company Number: WAES 1007USA03067

PATIENT
  Age: 52 Year
  Sex: Female

DRUGS (4)
  1. EMEND [Suspect]
     Indication: NAUSEA
     Dosage: 115 MG/1X/IV
     Route: 042
     Dates: start: 20100722, end: 20100722
  2. EMEND [Suspect]
     Indication: VOMITING
     Dosage: 115 MG/1X/IV
     Route: 042
     Dates: start: 20100722, end: 20100722
  3. COLACE [Concomitant]
  4. COMPAZINE [Concomitant]

REACTIONS (1)
  - ANAPHYLACTIC REACTION [None]
